FAERS Safety Report 4686104-7 (Version None)
Quarter: 2005Q2

REPORT INFORMATION
  Report Type: 
  Country: None (occurrence: None)
  Receive Date: 20050609
  Receipt Date: 20050329
  Transmission Date: 20051028
  Serious: Yes (Hospitalization)
  Sender: FDA-Public Use
  Company Number: US-GLAXOSMITHKLINE-A0551685A

PATIENT
  Age: 81 Year
  Sex: Female
  Weight: 39 kg

DRUGS (2)
  1. ECOTRIN REGULAR STRENGTH TABLETS [Suspect]
     Indication: PROPHYLAXIS
     Route: 048
     Dates: start: 20030101, end: 20050318
  2. AFRIN [Concomitant]
     Indication: ILL-DEFINED DISORDER

REACTIONS (11)
  - EPIGASTRIC DISCOMFORT [None]
  - EPISTAXIS [None]
  - GASTRITIS EROSIVE [None]
  - GASTROOESOPHAGEAL REFLUX DISEASE [None]
  - HAEMATEMESIS [None]
  - HIATUS HERNIA [None]
  - INCREASED UPPER AIRWAY SECRETION [None]
  - NAUSEA [None]
  - OESOPHAGITIS [None]
  - UPPER GASTROINTESTINAL HAEMORRHAGE [None]
  - WEIGHT DECREASED [None]
